FAERS Safety Report 18273301 (Version 1)
Quarter: 2020Q3

REPORT INFORMATION
  Report Type: Spontaneous
  Country: US (occurrence: US)
  Receive Date: 20200916
  Receipt Date: 20200916
  Transmission Date: 20201103
  Serious: No
  Sender: FDA-Public Use
  Company Number: US-THERAPEUTICSMD-2020TMD02643

PATIENT
  Age: 60 Year
  Sex: Female
  Weight: 58.05 kg

DRUGS (4)
  1. MONTELUKAST [Concomitant]
     Active Substance: MONTELUKAST SODIUM
  2. IMVEXXY [Suspect]
     Active Substance: ESTRADIOL
     Indication: MOOD SWINGS
  3. ESCITALOPRAM [Concomitant]
     Active Substance: ESCITALOPRAM OXALATE
  4. IMVEXXY [Suspect]
     Active Substance: ESTRADIOL
     Indication: VULVOVAGINAL DISCOMFORT
     Dosage: 10 ?G, EVERY 48 HOURS BEFORE BED
     Route: 067
     Dates: start: 20200604, end: 20200608

REACTIONS (5)
  - Flatulence [Not Recovered/Not Resolved]
  - Off label use [Recovered/Resolved]
  - Bowel movement irregularity [Unknown]
  - Abdominal distension [Not Recovered/Not Resolved]
  - Abdominal pain lower [Unknown]

NARRATIVE: CASE EVENT DATE: 20200604
